FAERS Safety Report 7321060-4 (Version None)
Quarter: 2011Q1

REPORT INFORMATION
  Report Type: 
  Country: None (occurrence: None)
  Receive Date: 20110223
  Receipt Date: 20110223
  Transmission Date: 20110831
  Serious: Yes (Hospitalization, Other)
  Sender: FDA-Public Use
  Company Number: None

PATIENT
  Age: 44 Year
  Sex: Female
  Weight: 97.5234 kg

DRUGS (3)
  1. HEART MEDICATION [Concomitant]
  2. PROPOXYPHENE NAPSYLATE AND ACETAMINOPHEN [Suspect]
     Indication: SURGERY
     Dosage: 1-2 EVERY 4-6 HRS. PAIN PO
     Route: 048
     Dates: start: 20080816, end: 20090611
  3. PROPOXYPHENE NAPSYLATE AND ACETAMINOPHEN [Suspect]
     Indication: DIVERTICULITIS
     Dosage: 1-2 EVERY 4-6 HRS. PAIN PO
     Route: 048
     Dates: start: 20080816, end: 20090611

REACTIONS (1)
  - CARDIAC DISORDER [None]
